FAERS Safety Report 9308123 (Version 2)
Quarter: 2013Q3

REPORT INFORMATION
  Report Type: Report from Study
  Country: US (occurrence: US)
  Receive Date: 20130524
  Receipt Date: 20130705
  Transmission Date: 20140515
  Serious: Yes (Hospitalization, Other)
  Sender: FDA-Public Use
  Company Number: US-ABBOTT-13P-163-1091994-00

PATIENT
  Sex: Female
  Weight: 29.6 kg

DRUGS (2)
  1. LUPRON DEPOT-PED [Suspect]
     Indication: PRECOCIOUS PUBERTY
     Route: 030
     Dates: start: 200410
  2. LUPRON DEPOT-PED [Suspect]
     Indication: PRECOCIOUS PUBERTY

REACTIONS (1)
  - Scoliosis [Recovering/Resolving]
